FAERS Safety Report 25698326 (Version 1)
Quarter: 2025Q3

REPORT INFORMATION
  Report Type: Spontaneous
  Country: US (occurrence: US)
  Receive Date: 20250819
  Receipt Date: 20250819
  Transmission Date: 20251020
  Serious: No
  Sender: BRISTOL-MYERS SQUIBB COMPANY
  Company Number: US-BRISTOL-MYERS SQUIBB COMPANY-2025-114765

PATIENT

DRUGS (2)
  1. APIXABAN [Suspect]
     Active Substance: APIXABAN
     Indication: Post procedural complication
     Dosage: 2.5 MG BID
  2. ASPIRIN [Concomitant]
     Active Substance: ASPIRIN
     Indication: Post procedural complication
     Dosage: 81 MG DAILY

REACTIONS (1)
  - Off label use [Unknown]
